FAERS Safety Report 7029462-0 (Version None)
Quarter: 2010Q4

REPORT INFORMATION
  Report Type: 
  Country: None (occurrence: None)
  Receive Date: 20101005
  Receipt Date: 20100927
  Transmission Date: 20110411
  Serious: Yes (Death)
  Sender: FDA-Public Use
  Company Number: US-AMGEN-QUU435491

PATIENT
  Sex: Female

DRUGS (3)
  1. NPLATE [Suspect]
     Indication: IDIOPATHIC THROMBOCYTOPENIC PURPURA
     Dates: start: 20090323, end: 20090419
  2. NEULASTA [Suspect]
     Indication: CHEMOTHERAPY
  3. UNSPECIFIED ANTINEOPLASTIC AGENT [Concomitant]

REACTIONS (1)
  - CHRONIC LYMPHOCYTIC LEUKAEMIA [None]
